FAERS Safety Report 9535922 (Version 1)
Quarter: 2013Q2

REPORT INFORMATION
  Report Type: Spontaneous
  Country: US (occurrence: None)
  Receive Date: 20130507
  Receipt Date: 20130507
  Transmission Date: 20140414
  Serious: No
  Sender: FDA-Public Use
  Company Number: PHEH2013US005027

PATIENT
  Age: 42 Year
  Sex: Female

DRUGS (5)
  1. AFINITOR [Suspect]
     Indication: TUBEROUS SCLEROSIS
     Route: 048
  2. TRUVADA (EMTRICITABINE, TENOFOVIR DISOPROXIL FUMARATE) [Concomitant]
  3. NORVASC (AMLODIPINE BESILATE) [Concomitant]
  4. CEROVITE (FOLIC ACID,IRON) [Concomitant]
  5. PREZISTA (DARUNAVIR ETHANOLATE) [Concomitant]

REACTIONS (2)
  - Vomiting [None]
  - Nausea [None]
